FAERS Safety Report 8384235-1 (Version None)
Quarter: 2012Q2

REPORT INFORMATION
  Report Type: 
  Country: None (occurrence: None)
  Receive Date: 20120524
  Receipt Date: 20120518
  Transmission Date: 20120825
  Serious: Yes (Hospitalization)
  Sender: FDA-Public Use
  Company Number: US-MERCK-1202USA02448

PATIENT
  Age: 53 Year
  Sex: Female

DRUGS (2)
  1. FOSAMAX [Suspect]
     Route: 048
  2. FOSAMAX PLUS D [Suspect]
     Indication: OSTEOPOROSIS
     Route: 048

REACTIONS (27)
  - VERTIGO [None]
  - TYPE 2 DIABETES MELLITUS [None]
  - AORTIC DISORDER [None]
  - POST PROCEDURAL CONSTIPATION [None]
  - PULMONARY GRANULOMA [None]
  - DEPRESSION [None]
  - HYPERTENSIVE HEART DISEASE [None]
  - HYPERTENSION [None]
  - ACQUIRED DIAPHRAGMATIC EVENTRATION [None]
  - PROCEDURAL HAEMORRHAGE [None]
  - TRANSIENT ISCHAEMIC ATTACK [None]
  - DYSLIPIDAEMIA [None]
  - BALANCE DISORDER [None]
  - LOW TURNOVER OSTEOPATHY [None]
  - GLAUCOMA [None]
  - FEMUR FRACTURE [None]
  - GENERALISED ANXIETY DISORDER [None]
  - OSTEOARTHRITIS [None]
  - BUNDLE BRANCH BLOCK LEFT [None]
  - ANAEMIA POSTOPERATIVE [None]
  - HYPOTENSION [None]
  - SYNCOPE [None]
  - OSTEOPENIA [None]
  - GASTROOESOPHAGEAL REFLUX DISEASE [None]
  - ABDOMINAL PAIN UPPER [None]
  - VITAMIN D DEFICIENCY [None]
  - DRUG INEFFECTIVE [None]
